FAERS Safety Report 9517822 (Version 1)
Quarter: 2013Q1

REPORT INFORMATION
  Report Type: Spontaneous
  Country: US (occurrence: None)
  Receive Date: 20130305
  Receipt Date: 20130305
  Transmission Date: 20140127
  Serious: Yes (Other)
  Sender: FDA-Public Use
  Company Number: 163-21880-12011999

PATIENT
  Age: 63 Year
  Sex: Female
  Weight: 86.18 kg

DRUGS (8)
  1. REVLIMID ( LENALIDOMIDE) ( 10 MILLIGRAM, CAPSULES) [Suspect]
     Indication: PLASMA CELL MYELOMA
     Route: 048
     Dates: start: 20101117
  2. ADVAIR (SERETIDE MITE) (UNKNOWN) [Concomitant]
  3. ATIVAN (LORAZEPAM) (UNKNOWN) [Concomitant]
  4. CELEXA (CITALOPRAM HYDROBROMIDE) (UNKNOWN) [Concomitant]
  5. OXYCONTIN (OXYCODONE HYDROCHLORIDE) (UNKNOWN) [Concomitant]
  6. PECOCET (OXYCOCET) (UNKNOWN) [Concomitant]
  7. SPIRIVA (TIOTROPIUM BROMIDE)  (UNKNOWN) [Concomitant]
  8. WELLBUTRIN (BUPROPION HYDROCHLORDE) (UNKNOWN) [Concomitant]

REACTIONS (1)
  - Chronic obstructive pulmonary disease [None]
